FAERS Safety Report 8710868 (Version 2)
Quarter: 2012Q4

REPORT INFORMATION
  Report Type: 
  Country: FR (occurrence: FR)
  Receive Date: 20120807
  Receipt Date: 20120917
  Transmission Date: 20130627
  Serious: Yes (Other)
  Sender: FDA-Public Use
  Company Number: PHHY2012FR067122

PATIENT
  Sex: Male
  Weight: 60 kg

DRUGS (7)
  1. NEBIVOLOL [Concomitant]
     Indication: HYPERTENSION
     Dosage: 1 DF, Daily
  2. PERMIXON [Concomitant]
     Indication: MICTURITION DISORDER
     Dosage: 1 UKN, UNK
     Route: 048
  3. ARANESP [Concomitant]
     Indication: ANAEMIA
     Dosage: 500 ug,
  4. GLIVEC [Suspect]
     Indication: CHRONIC MYELOID LEUKAEMIA
     Dosage: 800 mg, Daily
     Route: 048
     Dates: start: 20110723, end: 20120720
  5. GLIVEC [Suspect]
     Dosage: 400 mg, Daily
     Route: 065
  6. ALLOPURINOL [Concomitant]
     Indication: HYPERURICAEMIA
     Dosage: 100 mg, Daily
     Route: 048
  7. ALTEIS [Concomitant]
     Indication: HYPERTENSION
     Dosage: 20 mg, Daily
     Route: 048

REACTIONS (2)
  - Renal injury [Unknown]
  - Blood creatine increased [Unknown]
